FAERS Safety Report 7179387-5 (Version None)
Quarter: 2010Q4

REPORT INFORMATION
  Report Type: 
  Country: None (occurrence: None)
  Receive Date: 20101208
  Receipt Date: 20101126
  Transmission Date: 20110411
  Serious: Yes (Death)
  Sender: FDA-Public Use
  Company Number: URSO-2010-148

PATIENT
  Age: 66 Year
  Sex: Male

DRUGS (2)
  1. URSODEOXYCHOLIC ACID [Suspect]
     Dosage: ORAL
     Route: 048
     Dates: start: 20070101, end: 20090101
  2. TWO UNSPECIFIED DRUGS [Concomitant]

REACTIONS (1)
  - INTERSTITIAL LUNG DISEASE [None]
